FAERS Safety Report 6103505-0 (Version None)
Quarter: 2009Q1

REPORT INFORMATION
  Report Type: 
  Country: None (occurrence: None)
  Receive Date: 20090302
  Receipt Date: 20090212
  Transmission Date: 20090719
  Serious: Yes (Other)
  Sender: FDA-Public Use
  Company Number: 8043346

PATIENT
  Age: 38 Year
  Sex: Female

DRUGS (2)
  1. PREDNISOLONE [Suspect]
     Indication: IMMUNOSUPPRESSION
     Dosage: 5 MG /D;
  2. BASILIXIMAB [Suspect]
     Indication: IMMUNOSUPPRESSION

REACTIONS (3)
  - BLOOD CREATININE INCREASED [None]
  - EPSTEIN-BARR VIRUS ASSOCIATED LYMPHOPROLIFERATIVE DISORDER [None]
  - NON-HODGKIN'S LYMPHOMA [None]
